FAERS Safety Report 6006292-X (Version None)
Quarter: 2008Q4

REPORT INFORMATION
  Report Type: 
  Country: None (occurrence: None)
  Receive Date: 20081216
  Receipt Date: 20081216
  Transmission Date: 20090506
  Serious: Yes (Hospitalization)
  Sender: FDA-Public Use
  Company Number: None

PATIENT
  Age: 67 Year
  Sex: Male
  Weight: 95.2554 kg

DRUGS (13)
  1. GEMZAR [Suspect]
     Indication: PANCREATIC CARCINOMA STAGE IV
     Dosage: 750 MG/MG IV DAYS1 + 8
     Route: 042
     Dates: start: 20080731
  2. XELODA [Suspect]
     Dosage: 850MG/M2 PO BID DAY1-14
     Route: 048
     Dates: start: 20080731
  3. ACETAMINOPHEN [Concomitant]
  4. CIPRO [Concomitant]
  5. COLACE [Concomitant]
  6. FERROUS GLUCONATE [Concomitant]
  7. FLOMAX [Concomitant]
  8. AMBIEN [Concomitant]
  9. RED BLOOD CELLS [Concomitant]
  10. ASCORBIC ACID [Concomitant]
  11. LASIX [Concomitant]
  12. ARANESP [Concomitant]
  13. LOVENOX [Concomitant]

REACTIONS (4)
  - ANAEMIA [None]
  - CYSTITIS HAEMORRHAGIC [None]
  - HAEMATOMA [None]
  - PALMAR-PLANTAR ERYTHRODYSAESTHESIA SYNDROME [None]
